FAERS Safety Report 14186179 (Version 1)
Quarter: 2017Q4

REPORT INFORMATION
  Report Type: Other
  Country: FR (occurrence: FR)
  Receive Date: 20171114
  Receipt Date: 20171114
  Transmission Date: 20180321
  Serious: Yes (Death)
  Sender: FDA-Public Use
  Company Number: FR-ORCHID HEALTHCARE-2033957

PATIENT
  Age: 26 Year
  Sex: Female
  Weight: 60 kg

DRUGS (6)
  1. LAMOTRIGINE. [Suspect]
     Active Substance: LAMOTRIGINE
     Route: 065
  2. VENLAFAXINE HYDROCHLORIDE. [Suspect]
     Active Substance: VENLAFAXINE HYDROCHLORIDE
     Indication: SUICIDE ATTEMPT
     Route: 065
  3. CYAMEMAZINE [Suspect]
     Active Substance: CYAMEMAZINE
     Route: 065
  4. PROPRANOLOL [Suspect]
     Active Substance: PROPRANOLOL HYDROCHLORIDE
     Route: 065
  5. MIANSERIN [Suspect]
     Active Substance: MIANSERIN
     Route: 065
  6. LOXAPINE. [Suspect]
     Active Substance: LOXAPINE
     Route: 065

REACTIONS (3)
  - Suicide attempt [Fatal]
  - Cardiac arrest [Fatal]
  - Brain death [Fatal]
